FAERS Safety Report 13184992 (Version 2)
Quarter: 2017Q3

REPORT INFORMATION
  Report Type: Spontaneous
  Country: US (occurrence: US)
  Receive Date: 20170203
  Receipt Date: 20170714
  Transmission Date: 20171127
  Serious: Yes (Other)
  Sender: FDA-Public Use
  Company Number: US-LUPIN PHARMACEUTICALS INC.-2017-00421

PATIENT
  Sex: Male

DRUGS (6)
  1. LITHIUM CARBONATE. [Concomitant]
     Active Substance: LITHIUM CARBONATE
     Indication: AFFECTIVE DISORDER
     Dosage: 450 MG, QD
     Route: 065
  2. ZIPRASIDONE HYDROCHLORIDE CAPSULES, 20 MG [Suspect]
     Active Substance: ZIPRASIDONE HYDROCHLORIDE
     Indication: BIPOLAR DISORDER
     Dosage: 1 DF, TID
     Route: 048
  3. ZIPRASIDONE HYDROCHLORIDE CAPSULES, 20 MG [Suspect]
     Active Substance: ZIPRASIDONE HYDROCHLORIDE
     Indication: AFFECTIVE DISORDER
  4. GEODON [Suspect]
     Active Substance: ZIPRASIDONE HYDROCHLORIDE\ZIPRASIDONE MESYLATE
     Indication: BIPOLAR DISORDER
     Dosage: UNK
     Route: 065
  5. GEODON [Suspect]
     Active Substance: ZIPRASIDONE HYDROCHLORIDE\ZIPRASIDONE MESYLATE
     Indication: AFFECTIVE DISORDER
  6. AMBIEN [Concomitant]
     Active Substance: ZOLPIDEM TARTRATE
     Indication: INSOMNIA
     Dosage: 10 MG, AS DIRECTED
     Route: 065

REACTIONS (1)
  - Suicidal ideation [Not Recovered/Not Resolved]
